FAERS Safety Report 10100526 (Version 5)
Quarter: 2015Q1

REPORT INFORMATION
  Report Type: Spontaneous
  Country: US (occurrence: US)
  Receive Date: 20140423
  Receipt Date: 20150310
  Transmission Date: 20150720
  Serious: Yes (Hospitalization, Other)
  Sender: FDA-Public Use
  Company Number: US-GLAXOSMITHKLINE-A1070121A

PATIENT
  Age: 72 Year
  Sex: Female
  Weight: 60.9 kg

DRUGS (17)
  1. HYDRALAZINE [Suspect]
     Active Substance: HYDRALAZINE HYDROCHLORIDE
     Indication: BLOOD PRESSURE ABNORMAL
     Dosage: VARIABLE DOSE: PREVIOUSLY 2 TABLETS DAILY TO 4 TABLETS DAILY, CURRENTLY ONLY TAKEN WHEN SYSTOLI[...]
     Route: 048
     Dates: start: 2011
  2. HYDROCORTISONE. [Suspect]
     Active Substance: HYDROCORTISONE
     Indication: ADRENAL INSUFFICIENCY
     Dosage: 10 MG, QD
     Route: 048
     Dates: start: 20140416, end: 20140421
  3. BACLOFEN. [Concomitant]
     Active Substance: BACLOFEN
  4. MIRALAX [Concomitant]
     Active Substance: POLYETHYLENE GLYCOL 3350
  5. PROPAFENONE HYDROCHLORIDE SR [Suspect]
     Active Substance: PROPAFENONE HYDROCHLORIDE
     Indication: ATRIAL FIBRILLATION
     Route: 065
     Dates: start: 2012, end: 2012
  6. CLONIDINE PATCH [Concomitant]
  7. MAGNESIUM [Concomitant]
     Active Substance: MAGNESIUM
  8. COUMADIN [Concomitant]
     Active Substance: WARFARIN SODIUM
  9. PREDNISONE. [Concomitant]
     Active Substance: PREDNISONE
     Dates: start: 1990
  10. ALPRAZOLAM. [Concomitant]
     Active Substance: ALPRAZOLAM
  11. ZANTAC [Concomitant]
     Active Substance: RANITIDINE HYDROCHLORIDE
  12. VITAMIN D3 [Concomitant]
     Active Substance: CHOLECALCIFEROL
  13. HYDROCODONE/APAP [Concomitant]
     Active Substance: ACETAMINOPHEN\HYDROCODONE
  14. RYTHMOL SR [Suspect]
     Active Substance: PROPAFENONE HYDROCHLORIDE
     Indication: ATRIAL FIBRILLATION
     Dosage: 225 MG, BID
     Route: 048
     Dates: start: 2009
  15. BABY ASPIRIN [Concomitant]
     Active Substance: ASPIRIN
  16. DIGOXIN. [Concomitant]
     Active Substance: DIGOXIN
  17. CRANBERRY CAPSULES [Concomitant]

REACTIONS (16)
  - Blood pressure increased [Recovered/Resolved]
  - Memory impairment [Unknown]
  - Insomnia [Unknown]
  - Feeling hot [Unknown]
  - Fall [Recovered/Resolved]
  - Blood pressure fluctuation [Recovered/Resolved]
  - Pelvic fracture [Recovered/Resolved]
  - Condition aggravated [Recovered/Resolved]
  - Dyspnoea [Recovered/Resolved]
  - Adrenal insufficiency [Recovered/Resolved]
  - Abasia [Unknown]
  - Dizziness [Recovered/Resolved]
  - Overdose [Unknown]
  - Addison^s disease [Recovering/Resolving]
  - Intestinal obstruction [Unknown]
  - Arrhythmia [Recovered/Resolved]

NARRATIVE: CASE EVENT DATE: 201104
